FAERS Safety Report 15633496 (Version 1)
Quarter: 2018Q4

REPORT INFORMATION
  Report Type: Spontaneous
  Country: US (occurrence: US)
  Receive Date: 20181119
  Receipt Date: 20181119
  Transmission Date: 20190205
  Serious: Yes (Other)
  Sender: FDA-Public Use
  Company Number: US-SA-2018SA246313

PATIENT
  Age: 54 Year
  Sex: Female

DRUGS (2)
  1. TAXOTERE [Suspect]
     Active Substance: DOCETAXEL
     Dosage: UNK
     Route: 042
     Dates: start: 200802, end: 200802
  2. TAXOTERE [Suspect]
     Active Substance: DOCETAXEL
     Indication: BREAST CANCER FEMALE
     Dosage: UNK UNK, QCY
     Route: 042
     Dates: start: 200711, end: 200711

REACTIONS (4)
  - Alopecia [Not Recovered/Not Resolved]
  - Emotional distress [Unknown]
  - Psychological trauma [Unknown]
  - Anxiety [Unknown]

NARRATIVE: CASE EVENT DATE: 2007
